FAERS Safety Report 5957294-0 (Version None)
Quarter: 2008Q4

REPORT INFORMATION
  Report Type: 
  Country: None (occurrence: None)
  Receive Date: 20081118
  Receipt Date: 20081112
  Transmission Date: 20090506
  Serious: Yes (Other)
  Sender: FDA-Public Use
  Company Number: SE-B.I. PHARMACEUTICALS,INC./RIDGEFIELD-2008-SW-00262SW

PATIENT
  Sex: Female

DRUGS (11)
  1. SPIRIVA [Suspect]
     Indication: PROPHYLAXIS
     Dosage: 36MCG
     Route: 055
     Dates: start: 20080908, end: 20081001
  2. ATACAND [Suspect]
     Indication: ESSENTIAL HYPERTENSION
     Dosage: 8MG
     Route: 048
     Dates: start: 20080909, end: 20081001
  3. SYMBICORT TURBOHALER [Concomitant]
  4. NASONEX [Concomitant]
  5. VAGIFEM [Concomitant]
  6. BISOPROLOL FUMARATE [Concomitant]
  7. SERTRALIN [Concomitant]
  8. LORATADINE [Concomitant]
  9. CREON [Concomitant]
  10. IPREN [Concomitant]
  11. LECROLYN [Concomitant]

REACTIONS (3)
  - PAIN IN EXTREMITY [None]
  - RASH MACULAR [None]
  - VASCULITIS [None]
